FAERS Safety Report 16609233 (Version 1)
Quarter: 2019Q3

REPORT INFORMATION
  Report Type: Spontaneous
  Country: US (occurrence: US)
  Receive Date: 20190720
  Receipt Date: 20190720
  Transmission Date: 20191004
  Serious: No
  Sender: FDA-Public Use
  Company Number: None

PATIENT
  Age: 70 Year
  Sex: Female
  Weight: 66.6 kg

DRUGS (7)
  1. GABAPENTIN 300MG TID [Concomitant]
  2. RIZATRIPTAN PRN [Concomitant]
  3. ATORVASTATION 20 MG QD, [Concomitant]
  4. VIVISICAL BID [Concomitant]
  5. ZANTAC 300 MG HS [Concomitant]
  6. AIMOVIG [Suspect]
     Active Substance: ERENUMAB-AOOE
     Indication: MIGRAINE
     Dosage: ?          OTHER FREQUENCY:MONTHLY;?
     Route: 058
     Dates: end: 20190114
  7. OCUVIT BID [Concomitant]

REACTIONS (4)
  - Treatment failure [None]
  - Sinus congestion [None]
  - Depression [None]
  - Gastrooesophageal reflux disease [None]

NARRATIVE: CASE EVENT DATE: 20181212
